FAERS Safety Report 11573807 (Version 3)
Quarter: 2015Q4

REPORT INFORMATION
  Report Type: Report from Study
  Country: CN (occurrence: CN)
  Receive Date: 20150929
  Receipt Date: 20151222
  Transmission Date: 20160304
  Serious: Yes (Hospitalization)
  Sender: FDA-Public Use
  Company Number: CN-TAIHO ONCOLOGY INC-CN-2015-00292

PATIENT
  Age: 47 Year
  Sex: Male

DRUGS (5)
  1. TAS-102 [Suspect]
     Active Substance: TIPIRACIL HYDROCHLORIDE\TRIFLURIDINE
     Indication: COLORECTAL CANCER METASTATIC
     Dosage: CYCLE 4 STARTED ON 12/AUG/2015
     Route: 048
     Dates: start: 20150520, end: 20150823
  2. DIYU SHENGBAI PIAN [Concomitant]
     Dosage: NI
     Route: 048
     Dates: start: 20150909
  3. ADEMETIONINE 1,4-BUTANEDISULFONATE [Concomitant]
     Dosage: NI
     Route: 048
     Dates: start: 20150909
  4. FUFANG ZAOFAN WAN [Concomitant]
     Dosage: NI
     Route: 048
     Dates: start: 20150826, end: 20150906
  5. SHENGXUE WAN [Concomitant]
     Dosage: NI
     Route: 048
     Dates: start: 20150909

REACTIONS (1)
  - Blood bilirubin increased [Not Recovered/Not Resolved]

NARRATIVE: CASE EVENT DATE: 20150918
